FAERS Safety Report 7675483-4 (Version None)
Quarter: 2011Q3

REPORT INFORMATION
  Report Type: 
  Country: None (occurrence: None)
  Receive Date: 20110810
  Receipt Date: 20110808
  Transmission Date: 20111222
  Serious: Yes (Other)
  Sender: FDA-Public Use
  Company Number: AR-PFIZER INC-2011088589

PATIENT
  Sex: Male

DRUGS (4)
  1. CLONAZEPAM [Concomitant]
     Dosage: 5 UNK, UNK
     Dates: start: 20000101
  2. PAROXETINE [Concomitant]
     Dosage: UNK
     Dates: start: 20000101
  3. EZETIMIBE [Concomitant]
     Dosage: 10 MG, 1X/DAY
     Dates: start: 20080208
  4. ATORVASTATIN CALCIUM [Suspect]
     Dosage: 20 MG, 1X/DAY
     Route: 048
     Dates: start: 20080308, end: 20080321

REACTIONS (5)
  - PERIORBITAL OEDEMA [None]
  - DRUG HYPERSENSITIVITY [None]
  - FACE OEDEMA [None]
  - OEDEMA PERIPHERAL [None]
  - TONGUE OEDEMA [None]
